FAERS Safety Report 9928775 (Version 2)
Quarter: 2014Q2

REPORT INFORMATION
  Report Type: Spontaneous
  Country: US (occurrence: US)
  Receive Date: 20140227
  Receipt Date: 20140403
  Transmission Date: 20141212
  Serious: No
  Sender: FDA-Public Use
  Company Number: US-009507513-1402USA008383

PATIENT
  Age: 37 Year
  Sex: Female

DRUGS (1)
  1. FOLLISTIM AQ CARTRIDGE [Suspect]
     Indication: IN VITRO FERTILISATION
     Dosage: 450 IU, QD
     Route: 058
     Dates: start: 20131203, end: 20131210

REACTIONS (1)
  - Drug ineffective [Unknown]
